FAERS Safety Report 5826203-7 (Version None)
Quarter: 2008Q3

REPORT INFORMATION
  Report Type: 
  Country: None (occurrence: None)
  Receive Date: 20080723
  Receipt Date: 20080715
  Transmission Date: 20090109
  Serious: Yes (Other)
  Sender: FDA-Public Use
  Company Number: 151-21880-08070834

PATIENT
  Age: 67 Year
  Sex: Female

DRUGS (1)
  1. REVLIMID [Suspect]
     Indication: 5Q MINUS SYNDROME
     Dosage: 10 MG, FOR 21 DAYS PER 28-DAY CYCLE, ORAL
     Route: 048
     Dates: start: 20060501, end: 20061001

REACTIONS (3)
  - NEUTROPENIA [None]
  - PLATELET COUNT INCREASED [None]
  - POLYCYTHAEMIA [None]
